FAERS Safety Report 18320511 (Version 2)
Quarter: 2020Q3

REPORT INFORMATION
  Report Type: Report from Study
  Country: None (occurrence: ES)
  Receive Date: 20200929
  Receipt Date: 20200930
  Transmission Date: 20201103
  Serious: Yes (Hospitalization, Other)
  Sender: FDA-Public Use
  Company Number: ES-ABBVIE-20K-144-3583816-00

PATIENT
  Age: 70 Year
  Sex: Male
  Weight: 65 kg

DRUGS (2)
  1. DUODOPA [Suspect]
     Active Substance: CARBIDOPA\LEVODOPA
  2. DUODOPA [Suspect]
     Active Substance: CARBIDOPA\LEVODOPA
     Indication: PARKINSON^S DISEASE
     Route: 050
     Dates: start: 20191217

REACTIONS (8)
  - Crying [Unknown]
  - Urinary tract infection [Recovered/Resolved]
  - Hypophagia [Recovered/Resolved]
  - Time perception altered [Unknown]
  - Depressed mood [Unknown]
  - Disorientation [Unknown]
  - Apathy [Unknown]
  - Hypophagia [Unknown]

NARRATIVE: CASE EVENT DATE: 202008
